FAERS Safety Report 6138648-9 (Version None)
Quarter: 2009Q1

REPORT INFORMATION
  Report Type: 
  Country: None (occurrence: None)
  Receive Date: 20090327
  Receipt Date: 20090319
  Transmission Date: 20090719
  Serious: Yes (Life-Threatening)
  Sender: FDA-Public Use
  Company Number: 2009AL001671

PATIENT
  Age: 49 Year
  Sex: Male

DRUGS (10)
  1. INDAPAMIDE [Suspect]
     Indication: HYPERTENSION
     Dosage: 1.5 MG; QD; PO
     Route: 048
     Dates: start: 20080601, end: 20090226
  2. CITALOPRAM HYDROBROMIDE [Suspect]
     Indication: ANXIETY
     Dosage: 20 MG; QD; PO
     Route: 048
     Dates: start: 20081101, end: 20090226
  3. AMITRIPTYLINE [Concomitant]
  4. ENALAPRIL [Concomitant]
  5. OXCARBAZEPINE [Concomitant]
  6. IBUPROFEN [Concomitant]
  7. PARACETAMOL [Concomitant]
  8. SIMVASTATIN [Concomitant]
  9. RANITIDINE [Concomitant]
  10. AMLODIPINE [Concomitant]

REACTIONS (4)
  - AGGRESSION [None]
  - CONFUSIONAL STATE [None]
  - CONVULSION [None]
  - HYPONATRAEMIA [None]
